FAERS Safety Report 4354874-3 (Version None)
Quarter: 2004Q2

REPORT INFORMATION
  Report Type: 
  Country: None (occurrence: None)
  Receive Date: 20040507
  Receipt Date: 20040426
  Transmission Date: 20050107
  Serious: Yes (Other)
  Sender: FDA-Public Use
  Company Number: PHRM2004FR01675

PATIENT
  Age: 75 Year
  Sex: Male

DRUGS (5)
  1. LASIX [Suspect]
     Dosage: 40 MG, QD
  2. LASIX [Suspect]
     Dosage: 20 MG, QD
  3. NISISCO [Suspect]
     Route: 048
     Dates: start: 20040326, end: 20040423
  4. NISIS [Suspect]
     Dosage: 160 MG, QD
  5. NISIS [Suspect]
     Dosage: 80 MG, QD

REACTIONS (2)
  - BLOOD CHLORIDE DECREASED [None]
  - HYPONATRAEMIA [None]
